FAERS Safety Report 18341223 (Version 1)
Quarter: 2020Q4

REPORT INFORMATION
  Report Type: Spontaneous
  Country: IT (occurrence: IT)
  Receive Date: 20201003
  Receipt Date: 20201003
  Transmission Date: 20210113
  Serious: Yes (Hospitalization, Disabling, Other)
  Sender: FDA-Public Use
  Company Number: IT-SHILPA MEDICARE LIMITED-SML-IT-2020-00366

PATIENT
  Sex: Male

DRUGS (2)
  1. CAPECITABINA, UNKNOWN [Suspect]
     Active Substance: CAPECITABINE
     Indication: METASTASES TO BONE
     Dosage: 1.6 G/M2/DAY, DAYS 1 TO 15 EVERY 3 WEEKS
     Dates: start: 20190926
  2. OXALIPLATIN. [Suspect]
     Active Substance: OXALIPLATIN
     Indication: METASTASES TO BONE
     Dosage: 104 MG/M2, DAY 1 EVERY 3 WEEKS
     Dates: start: 20190926

REACTIONS (5)
  - Confusional state [Recovered/Resolved]
  - Memory impairment [Recovered/Resolved]
  - Hyperammonaemia [Recovered/Resolved]
  - Toxic encephalopathy [Recovered/Resolved]
  - Gait disturbance [Recovered/Resolved]

NARRATIVE: CASE EVENT DATE: 20191007
